FAERS Safety Report 25817184 (Version 1)
Quarter: 2025Q3

REPORT INFORMATION
  Report Type: Spontaneous
  Country: US (occurrence: US)
  Receive Date: 20250918
  Receipt Date: 20250918
  Transmission Date: 20251021
  Serious: Yes (Other)
  Sender: MYLAN
  Company Number: US-MYLANLABS-2025M1079323

PATIENT
  Age: 66 Year
  Sex: Male

DRUGS (2)
  1. PHENYTOIN [Interacting]
     Active Substance: PHENYTOIN
     Indication: Temporal lobe epilepsy
  2. CANNABIS SATIVA SUBSP. INDICA TOP [Interacting]
     Active Substance: CANNABIS SATIVA SUBSP. INDICA TOP
     Indication: Insomnia

REACTIONS (7)
  - Toxicity to various agents [Recovered/Resolved]
  - Drug interaction [Recovered/Resolved]
  - Dystonia [Recovered/Resolved]
  - Myoclonus [Recovered/Resolved]
  - Akathisia [Recovered/Resolved]
  - Dyskinesia [Unknown]
  - Chorea [Recovered/Resolved]
